FAERS Safety Report 7277716-5 (Version None)
Quarter: 2011Q1

REPORT INFORMATION
  Report Type: 
  Country: None (occurrence: None)
  Receive Date: 20110207
  Receipt Date: 20110128
  Transmission Date: 20110831
  Serious: Yes (Hospitalization, Other)
  Sender: FDA-Public Use
  Company Number: US-JNJFOC-20110200077

PATIENT
  Sex: Male
  Weight: 104.33 kg

DRUGS (6)
  1. LANTUS [Concomitant]
     Indication: DIABETES MELLITUS
     Dosage: 100U AT BED TIME
     Route: 048
  2. HALDOL [Suspect]
     Indication: SCHIZOPHRENIA, PARANOID TYPE
     Route: 030
  3. HALDOL [Suspect]
     Dosage: STARTED SINCE 1994 OR 1995
     Route: 030
  4. METFORMIN [Concomitant]
     Indication: DIABETES MELLITUS
     Route: 048
  5. ZYPREXA [Concomitant]
     Indication: SCHIZOPHRENIA, PARANOID TYPE
     Route: 048
  6. INSULIN [Concomitant]
     Indication: DIABETES MELLITUS
     Dosage: 2U WITH EACH MEAL
     Route: 058

REACTIONS (5)
  - BLADDER INJURY [None]
  - DYSURIA [None]
  - HYPERTENSION [None]
  - BLADDER DISORDER [None]
  - ABNORMAL LOSS OF WEIGHT [None]
